FAERS Safety Report 22604231 (Version 1)
Quarter: 2023Q2

REPORT INFORMATION
  Report Type: Spontaneous
  Country: GR (occurrence: GR)
  Receive Date: 20230615
  Receipt Date: 20230615
  Transmission Date: 20230721
  Serious: Yes (Hospitalization, Other)
  Sender: FDA-Public Use
  Company Number: GR-AMGEN-GRCSP2023094607

PATIENT
  Age: 38 Year
  Sex: Female

DRUGS (1)
  1. PROLIA [Suspect]
     Active Substance: DENOSUMAB
     Indication: Osteoporosis
     Dosage: UNK
     Route: 065
     Dates: start: 20230310

REACTIONS (4)
  - Hypocalcaemia [Recovering/Resolving]
  - Electrocardiogram QT prolonged [Unknown]
  - Hypoaesthesia oral [Unknown]
  - Bone density decreased [Unknown]
